FAERS Safety Report 4572199-8 (Version None)
Quarter: 2005Q1

REPORT INFORMATION
  Report Type: 
  Country: None (occurrence: None)
  Receive Date: 20050202
  Receipt Date: 20050118
  Transmission Date: 20050727
  Serious: Yes (Other)
  Sender: FDA-Public Use
  Company Number: USA050188699

PATIENT
  Age: 61 Year
  Sex: Male

DRUGS (6)
  1. HUMULIN N [Suspect]
     Dosage: 46 U DAY
     Dates: end: 20050108
  2. HUMULIN R [Suspect]
     Dates: start: 19930101, end: 20050108
  3. HUMULIN 70/30 [Suspect]
  4. HUMULIN 50/50 [Suspect]
  5. LANTUS [Concomitant]
  6. NOVOLIN R [Concomitant]

REACTIONS (6)
  - BLOOD GLUCOSE ABNORMAL [None]
  - DIABETIC RETINOPATHY [None]
  - INSOMNIA [None]
  - MIDDLE EAR DISORDER [None]
  - PROSTATE CANCER [None]
  - TINNITUS [None]
